FAERS Safety Report 24739091 (Version 7)
Quarter: 2025Q3

REPORT INFORMATION
  Report Type: Spontaneous
  Country: US (occurrence: US)
  Receive Date: 20241216
  Receipt Date: 20250910
  Transmission Date: 20251021
  Serious: No
  Sender: PFIZER
  Company Number: US-PFIZER INC-PV202400089670

PATIENT
  Age: 53 Year
  Sex: Female

DRUGS (5)
  1. TUKYSA [Suspect]
     Active Substance: TUCATINIB
     Indication: Breast cancer metastatic
     Dosage: 250 MG, 2X/DAY (TUKYSA 150MG TAKE 1 TABLET TWICE A DAY WITH TUKYSA 50MG 2 TABLETS TWICE A DAY)
  2. TUKYSA [Suspect]
     Active Substance: TUCATINIB
     Dosage: TAKE TUKYSA 150MG TAB BID WITH 50MG. TAKE 2 TAB BID
  3. TUKYSA [Suspect]
     Active Substance: TUCATINIB
     Dosage: 50MG TABLETS; 2 TABLETS TWICE DAILY
  4. TUKYSA [Suspect]
     Active Substance: TUCATINIB
     Dosage: 150MG TABLETS; 1 TABLET TWICE DAILY
  5. TUKYSA [Suspect]
     Active Substance: TUCATINIB
     Dosage: 250 MG, 2X/DAY (150MG; 1 TABLET AND 50MG; 2 TABLETS, TWICE A DAY)

REACTIONS (8)
  - Diarrhoea [Unknown]
  - Nausea [Unknown]
  - Palmar-plantar erythrodysaesthesia syndrome [Unknown]
  - Peripheral sensory neuropathy [Unknown]
  - Blood bilirubin increased [Unknown]
  - Hepatic steatosis [Unknown]
  - Adnexa uteri cyst [Unknown]
  - Ovarian cyst [Unknown]
